FAERS Safety Report 4285645-4 (Version None)
Quarter: 2004Q1

REPORT INFORMATION
  Report Type: 
  Country: None (occurrence: None)
  Receive Date: 20040203
  Receipt Date: 20031029
  Transmission Date: 20041129
  Serious: Yes (Hospitalization, Disabling, Other)
  Sender: FDA-Public Use
  Company Number: M2004.6942

PATIENT
  Age: 56 Year
  Sex: Female

DRUGS (2)
  1. RANITIDINE HCL [Suspect]
     Indication: ABDOMINAL PAIN UPPER
     Dates: start: 19971009, end: 19971009
  2. CORTICOIDTHERAPY (1 MG/KG/DAY,  STARTED ON 10/03/1997) [Concomitant]

REACTIONS (6)
  - MENINGITIS [None]
  - MENTAL RETARDATION SEVERITY UNSPECIFIED [None]
  - MOTOR DYSFUNCTION [None]
  - MYALGIA [None]
  - NAUSEA [None]
  - PARAESTHESIA [None]
